FAERS Safety Report 7619508-0 (Version None)
Quarter: 2011Q3

REPORT INFORMATION
  Report Type: 
  Country: None (occurrence: None)
  Receive Date: 20110719
  Receipt Date: 20110704
  Transmission Date: 20111222
  Serious: Yes (Other)
  Sender: FDA-Public Use
  Company Number: DE-JNJFOC-20110510058

PATIENT
  Sex: Male
  Weight: 73 kg

DRUGS (10)
  1. TAPENTADOL [Suspect]
     Indication: BACK PAIN
     Route: 065
  2. NSAID'S [Concomitant]
     Route: 065
  3. NALOXONE HYDROCHLORIDE W/TILIDINE HYDROCHLO. [Concomitant]
     Route: 065
  4. TEMAZEPAM [Concomitant]
     Route: 065
  5. TAPENTADOL [Suspect]
     Route: 065
     Dates: start: 20110201, end: 20110210
  6. TAPENTADOL [Suspect]
     Route: 065
     Dates: start: 20110119, end: 20110201
  7. MUSCLE RELAXANTS [Concomitant]
     Route: 065
  8. IBUPROFEN [Concomitant]
     Route: 065
  9. ANALGESICS [Concomitant]
     Route: 065
  10. PREGABALIN [Concomitant]
     Route: 065

REACTIONS (3)
  - NAUSEA [None]
  - DIZZINESS [None]
  - ORTHOSTATIC INTOLERANCE [None]
